FAERS Safety Report 20489461 (Version 1)
Quarter: 2022Q1

REPORT INFORMATION
  Report Type: Spontaneous
  Country: US (occurrence: None)
  Receive Date: 20220217
  Receipt Date: 20220217
  Transmission Date: 20220423
  Serious: Yes (unspecified)
  Sender: FDA-Public Use
  Company Number: None

PATIENT
  Age: 27 Year
  Sex: Female
  Weight: 91.35 kg

DRUGS (8)
  1. AMOXICILLIN\CLAVULANATE POTASSIUM [Suspect]
     Active Substance: AMOXICILLIN\CLAVULANATE POTASSIUM
     Indication: Colitis
     Dosage: OTHER QUANTITY : 14 TABLET(S);?FREQUENCY : EVERY 12 HOURS;?
     Route: 048
     Dates: start: 20220210, end: 20220217
  2. NAOROXEN [Concomitant]
  3. NYSTATIN [Concomitant]
     Active Substance: NYSTATIN
  4. TRIAMCINOLONE [Concomitant]
     Active Substance: TRIAMCINOLONE
  5. OINTMENT [Concomitant]
  6. ONDANSETRON [Concomitant]
     Active Substance: ONDANSETRON
  7. FLUCONAZOLE [Concomitant]
     Active Substance: FLUCONAZOLE
  8. NATURE BOUNTY ACIDOPHILUS PROBIOTIC [Concomitant]

REACTIONS (3)
  - Vulvovaginal pruritus [None]
  - Oropharyngeal pain [None]
  - Throat irritation [None]

NARRATIVE: CASE EVENT DATE: 20220213
